FAERS Safety Report 9470907 (Version 4)
Quarter: 2014Q1

REPORT INFORMATION
  Report Type: Spontaneous
  Country: US (occurrence: US)
  Receive Date: 20130822
  Receipt Date: 20140225
  Transmission Date: 20141002
  Serious: No
  Sender: FDA-Public Use
  Company Number: US-UCBSA-092350

PATIENT
  Sex: Female
  Weight: 60.78 kg

DRUGS (20)
  1. KEPPRA XR [Suspect]
     Indication: CONVULSION
     Dosage: STRENGTH: 500 MG
     Dates: start: 2007
  2. KEPPRA XR [Suspect]
     Indication: CONVULSION
     Dosage: 4 TABLETS A DAY
  3. KEPPRA XR [Suspect]
     Indication: CONVULSION
  4. KEPPRA XR [Suspect]
     Indication: CONVULSION
     Dosage: 500MG 2 TABLET TWICE A DAY
  5. KEPPRA XR [Suspect]
     Indication: CONVULSION
     Dosage: 1000MG IN THE MORNING AND 1500MG IN THE EVENING
     Dates: start: 201312
  6. ASPIRIN [Concomitant]
     Dosage: 81MG 1 TABLET ONCE A DAY
  7. AZATHIOPRINE [Concomitant]
     Dosage: 50MG-3 TABLET A DAY
  8. LORAZEPAM [Concomitant]
     Indication: CONVULSION
     Dosage: 0.5MG -1 TABLET TWICE A DAY PRN
  9. LORAZEPAM [Concomitant]
     Indication: ANXIETY
     Dosage: 0.5MG -1 TABLET TWICE A DAY PRN
  10. OMEPRAZOLE [Concomitant]
     Dosage: DELAYED RELEASE
  11. VITAMIN C [Concomitant]
     Dosage: 500MG
  12. CALCITRIOL [Concomitant]
  13. VITAMIN D [Concomitant]
     Dosage: 1000 UNIT 1 TABLET ONCE A DAY
  14. PHOSPHA [Concomitant]
     Dosage: UNSPECIFIED DOSE
  15. CRANBERRY SUPPLEMENTS [Concomitant]
  16. PROGRAF [Concomitant]
  17. PREDNISONE [Concomitant]
     Dosage: 1MG TABLET HALF TABLET ONCE A DAY
  18. NOVOLOG [Concomitant]
  19. MULTIVITAMIN [Concomitant]
     Dosage: 1 CAPSULE ONCE A DAY
  20. PHOS NAK [Concomitant]
     Dosage: 280MG-160MG-250MG I PAKET TWICE A DAY

REACTIONS (6)
  - Hyperkinesia [Recovering/Resolving]
  - Anxiety [Not Recovered/Not Resolved]
  - Feeling abnormal [Recovered/Resolved]
  - Cough [Unknown]
  - Mood swings [Unknown]
  - Inappropriate schedule of drug administration [Not Recovered/Not Resolved]
